FAERS Safety Report 7897134-6 (Version None)
Quarter: 2011Q4

REPORT INFORMATION
  Report Type: 
  Country: None (occurrence: None)
  Receive Date: 20111107
  Receipt Date: 20111024
  Transmission Date: 20120403
  Serious: Yes (Hospitalization)
  Sender: FDA-Public Use
  Company Number: DE-ELI_LILLY_AND_COMPANY-DE201110006028

PATIENT
  Age: 60 Year
  Sex: Female

DRUGS (4)
  1. DEKRISTOL [Concomitant]
     Dosage: UNK, WEEKLY (1/W)
  2. FORTEO [Suspect]
     Indication: OSTEOPOROSIS
     Dosage: UNK, QD
     Route: 058
     Dates: start: 20110124
  3. ENBREL [Concomitant]
  4. CORTISONE ACETATE [Concomitant]
     Dosage: UNK, PRN

REACTIONS (5)
  - SURGERY [None]
  - KNEE OPERATION [None]
  - HOSPITALISATION [None]
  - BACTERIAL INFECTION [None]
  - HAEMATOMA [None]
